FAERS Safety Report 14805910 (Version 2)
Quarter: 2018Q3

REPORT INFORMATION
  Report Type: Report from Study
  Country: JP (occurrence: JP)
  Receive Date: 20180425
  Receipt Date: 20180701
  Transmission Date: 20181010
  Serious: Yes (Life-Threatening, Hospitalization, Other)
  Sender: FDA-Public Use
  Company Number: JP-TEVA-641722ISR

PATIENT
  Age: 39 Year
  Sex: Female
  Weight: 58 kg

DRUGS (3)
  1. MEILAX [Concomitant]
     Active Substance: ETHYL LOFLAZEPATE
  2. LOXOPROFEN SODIUM [Concomitant]
     Active Substance: LOXOPROFEN SODIUM
  3. GLATIRAMER ACETATE. [Suspect]
     Active Substance: GLATIRAMER ACETATE
     Indication: RELAPSING-REMITTING MULTIPLE SCLEROSIS
     Dosage: 20 MILLIGRAM/MILLILITERS DAILY;
     Route: 058
     Dates: start: 20160217

REACTIONS (12)
  - Injection site erythema [Not Recovered/Not Resolved]
  - Anxiety disorder [Recovered/Resolved]
  - Condition aggravated [Recovered/Resolved]
  - Invasive ductal breast carcinoma [Recovered/Resolved]
  - Injection site swelling [Not Recovered/Not Resolved]
  - Endometrial hyperplasia [Recovered/Resolved]
  - Abdominal pain upper [Recovered/Resolved]
  - Injection site induration [Recovered/Resolved]
  - Influenza like illness [Recovered/Resolved]
  - Injection site pain [Recovered/Resolved]
  - Injection site pain [Recovered/Resolved]
  - Injection site pain [Not Recovered/Not Resolved]

NARRATIVE: CASE EVENT DATE: 20160217
